FAERS Safety Report 10206408 (Version 2)
Quarter: 2014Q2

REPORT INFORMATION
  Report Type: Spontaneous
  Country: US (occurrence: US)
  Receive Date: 20140530
  Receipt Date: 20140530
  Transmission Date: 20141212
  Serious: Yes (Other)
  Sender: FDA-Public Use
  Company Number: US-JNJFOC-20140401949

PATIENT
  Age: 24 Year
  Sex: Male
  Weight: 77 kg

DRUGS (2)
  1. RISPERDAL [Suspect]
     Indication: SCHIZOPHRENIA
     Route: 065
     Dates: end: 201402
  2. CELEXA [Suspect]
     Indication: DEPRESSION
     Route: 065
     Dates: start: 201401, end: 201402

REACTIONS (7)
  - Weight increased [Recovering/Resolving]
  - Breast mass [Recovering/Resolving]
  - Hot flush [Recovering/Resolving]
  - Pyrexia [Recovering/Resolving]
  - Heart rate decreased [Recovering/Resolving]
  - Hyperhidrosis [Recovering/Resolving]
  - Musculoskeletal stiffness [Recovering/Resolving]
